FAERS Safety Report 6752523-8 (Version None)
Quarter: 2010Q2

REPORT INFORMATION
  Report Type: 
  Country: None (occurrence: None)
  Receive Date: 20100528
  Receipt Date: 20100518
  Transmission Date: 20101027
  Serious: Yes (Hospitalization)
  Sender: FDA-Public Use
  Company Number: TPA2010A00973

PATIENT
  Age: 33 Year
  Sex: Female

DRUGS (5)
  1. ROZEREM [Suspect]
     Indication: INSOMNIA
     Dosage: 8 MG, QHS, ORAL
     Route: 048
     Dates: start: 20100216, end: 20100224
  2. FLUVOXAMINE MALEATE [Concomitant]
  3. TRAZODONE HCL [Concomitant]
  4. ZYPREXA [Concomitant]
  5. BUSPAR [Concomitant]

REACTIONS (3)
  - HYPERSOMNIA [None]
  - TREMOR [None]
  - VOMITING [None]
